FAERS Safety Report 16379364 (Version 9)
Quarter: 2020Q2

REPORT INFORMATION
  Report Type: Spontaneous
  Country: US (occurrence: US)
  Receive Date: 20190531
  Receipt Date: 20200515
  Transmission Date: 20200713
  Serious: Yes (Hospitalization, Disabling, Other)
  Sender: FDA-Public Use
  Company Number: US-ACTELION-A-NJ2019-190840

PATIENT
  Age: 85 Year
  Sex: Female

DRUGS (1)
  1. OPSUMIT [Suspect]
     Active Substance: MACITENTAN
     Indication: PULMONARY ARTERIAL HYPERTENSION
     Dosage: 10 MG, QD
     Route: 048
     Dates: start: 20180309

REACTIONS (10)
  - Neck surgery [Unknown]
  - Cervical vertebral fracture [Not Recovered/Not Resolved]
  - Iron deficiency [Unknown]
  - Hypotension [Unknown]
  - Neck injury [Unknown]
  - Neck pain [Unknown]
  - Clavicle fracture [Unknown]
  - Fall [Unknown]
  - Syncope [Unknown]
  - Cranial operation [Unknown]

NARRATIVE: CASE EVENT DATE: 201905
